FAERS Safety Report 7671102-1 (Version None)
Quarter: 2011Q3

REPORT INFORMATION
  Report Type: 
  Country: None (occurrence: None)
  Receive Date: 20110803
  Receipt Date: 20110719
  Transmission Date: 20111222
  Serious: Yes (Other)
  Sender: FDA-Public Use
  Company Number: 1000022461

PATIENT
  Age: 89 Year
  Sex: Female

DRUGS (5)
  1. ARICEPT [Concomitant]
  2. TETRAMIDE (MIANSERIN HYDROCHLORIDE ) (MIANSERIN HYDROCHLORIDE) [Concomitant]
  3. AMLODIPINE [Concomitant]
  4. MEMANTINE [Suspect]
     Indication: DEMENTIA ALZHEIMER'S TYPE
     Dosage: 5 MG (5 MG, 1 IN 1 D), ORAL
     Route: 048
     Dates: start: 20110611, end: 20110617
  5. MEMANTINE [Suspect]
     Indication: DEMENTIA ALZHEIMER'S TYPE
     Dosage: 10 MG (10 MG, 1 IN 1 D), ORAL
     Route: 048
     Dates: start: 20110618, end: 20110627

REACTIONS (3)
  - ABNORMAL BEHAVIOUR [None]
  - ALTERED STATE OF CONSCIOUSNESS [None]
  - REPETITIVE SPEECH [None]
